FAERS Safety Report 7621207-6 (Version None)
Quarter: 2011Q3

REPORT INFORMATION
  Report Type: 
  Country: None (occurrence: None)
  Receive Date: 20110719
  Receipt Date: 20110708
  Transmission Date: 20111222
  Serious: Yes (Hospitalization, Other)
  Sender: FDA-Public Use
  Company Number: FR-JNJFOC-20110310912

PATIENT
  Sex: Male
  Weight: 56 kg

DRUGS (7)
  1. REMICADE [Suspect]
     Indication: CROHN'S DISEASE
     Route: 042
     Dates: start: 20100930
  2. REMICADE [Suspect]
     Route: 042
     Dates: start: 20091029
  3. BLOOD TRANSFUSION [Concomitant]
  4. HUMIRA [Concomitant]
  5. MESALAMINE [Concomitant]
     Route: 048
  6. PREDNISONE [Concomitant]
  7. REMICADE [Suspect]
     Route: 042
     Dates: start: 20101116

REACTIONS (1)
  - CROHN'S DISEASE [None]
